FAERS Safety Report 8616684-8 (Version None)
Quarter: 2012Q3

REPORT INFORMATION
  Report Type: 
  Country: None (occurrence: None)
  Receive Date: 20120823
  Receipt Date: 20120821
  Transmission Date: 20120928
  Serious: Yes (Other)
  Sender: FDA-Public Use
  Company Number: US-PFIZER INC-2012205742

PATIENT
  Age: 59 Year
  Sex: Female
  Weight: 98.9 kg

DRUGS (4)
  1. LYRICA [Suspect]
     Indication: DIABETIC NEUROPATHY
     Dosage: 100 MG (TWO CAPSULES OF 50MG), 3X/DAY
     Route: 048
  2. LISINOPRIL [Concomitant]
     Indication: HYPERTENSION
     Dosage: UNK
  3. CELEBREX [Concomitant]
     Indication: ARTHRALGIA
     Dosage: UNK
  4. METFORMIN [Concomitant]
     Indication: DIABETES MELLITUS
     Dosage: UNK

REACTIONS (3)
  - PULMONARY MASS [None]
  - NEOPLASM MALIGNANT [None]
  - LUNG NEOPLASM MALIGNANT [None]
